FAERS Safety Report 6138746-X (Version None)
Quarter: 2009Q1

REPORT INFORMATION
  Report Type: 
  Country: None (occurrence: None)
  Receive Date: 20090327
  Receipt Date: 20090313
  Transmission Date: 20090719
  Serious: Yes (Death)
  Sender: FDA-Public Use
  Company Number: 200903IM000083

PATIENT
  Sex: Male
  Weight: 50 kg

DRUGS (1)
  1. ACTIMMUNE [Suspect]
     Indication: CHRONIC GRANULOMATOUS DISEASE

REACTIONS (1)
  - TREATMENT NONCOMPLIANCE [None]
